FAERS Safety Report 8568765 (Version 13)
Quarter: 2013Q3

REPORT INFORMATION
  Report Type: Spontaneous
  Country: US (occurrence: US)
  Receive Date: 20120518
  Receipt Date: 20130723
  Transmission Date: 20140515
  Serious: Yes (Hospitalization)
  Sender: FDA-Public Use
  Company Number: US-ASTRAZENECA-2011SE41508

PATIENT
  Age: 65 Year
  Sex: Male
  Weight: 127 kg

DRUGS (57)
  1. NEXIUM [Suspect]
     Indication: GASTRIC ULCER
     Route: 048
     Dates: start: 2001, end: 2006
  2. NEXIUM [Suspect]
     Indication: GASTRIC ULCER
     Route: 048
     Dates: start: 20020418
  3. NEXIUM [Suspect]
     Indication: GASTRIC ULCER
     Route: 048
     Dates: start: 20020830
  4. NEXIUM [Suspect]
     Indication: GASTRIC ULCER
     Route: 048
     Dates: start: 20050524
  5. NEXIUM [Suspect]
     Indication: GASTRIC ULCER
     Route: 048
     Dates: start: 20090721
  6. NEXIUM [Suspect]
     Indication: GASTRIC ULCER
     Route: 048
     Dates: start: 20111205
  7. OMEPRAZOLE/PRILOSEC [Suspect]
     Indication: GASTRIC ULCER
     Route: 048
     Dates: start: 2009
  8. OMEPRAZOLE/PRILOSEC [Suspect]
     Indication: GASTRIC ULCER
     Route: 048
     Dates: start: 20090721
  9. TUMS [Concomitant]
     Dosage: 4 A DAY
     Dates: start: 2006, end: 2009
  10. TRAMADOL [Concomitant]
     Indication: PAIN
  11. HYDROCODONE [Concomitant]
     Indication: PAIN
     Dates: start: 20080505
  12. CYCLOBENZAPRINE [Concomitant]
     Indication: PAIN
     Dosage: ONE TO TWO TABLETS EVERY NIGHT PRN
     Route: 048
     Dates: start: 20050811
  13. CYCLOBENZAPRINE [Concomitant]
     Indication: PAIN
     Dates: start: 20080505
  14. CYCLOBENZAPRINE [Concomitant]
     Indication: PAIN
     Dates: start: 20111205
  15. DOXYAZOSIN [Concomitant]
     Indication: PROSTATIC DISORDER
     Route: 048
     Dates: start: 20060811
  16. DOXYAZOSIN [Concomitant]
     Indication: PROSTATIC DISORDER
     Dates: start: 20080505
  17. DOXYAZOSIN [Concomitant]
     Indication: PROSTATIC DISORDER
     Dates: start: 20111205
  18. LISINOPRIL [Concomitant]
     Indication: BLOOD PRESSURE
     Dates: start: 20080505
  19. LISINOPRIL [Concomitant]
     Indication: BLOOD PRESSURE
     Dates: start: 20111205
  20. LISINOPRIL [Concomitant]
     Indication: BLOOD PRESSURE
     Dates: start: 20090728
  21. METAFORMIN/GLUCOPHAGE [Concomitant]
     Indication: DIABETES MELLITUS
     Dates: start: 20020418
  22. DITYRIDAMOLE [Concomitant]
     Indication: ANTICOAGULANT THERAPY
     Route: 048
     Dates: start: 20070811
  23. DITYRIDAMOLE [Concomitant]
     Indication: CEREBROVASCULAR ACCIDENT PROPHYLAXIS
     Route: 048
     Dates: start: 20070811
  24. DITYRIDAMOLE [Concomitant]
     Indication: ANTICOAGULANT THERAPY
     Dates: start: 20080505
  25. DITYRIDAMOLE [Concomitant]
     Indication: CEREBROVASCULAR ACCIDENT PROPHYLAXIS
     Dates: start: 20080505
  26. ASPIRIN [Concomitant]
     Indication: CEREBROVASCULAR ACCIDENT PROPHYLAXIS
     Dosage: 200-25 MG ORAL EVERY 12 HOURS
     Dates: start: 20080505
  27. FLOMAX [Concomitant]
     Dates: start: 20090721
  28. NEURONTIN [Concomitant]
     Indication: PAIN
     Route: 048
     Dates: start: 20060811
  29. NEURONTIN [Concomitant]
     Indication: PAIN
     Dates: start: 20080505
  30. NEURONTIN [Concomitant]
     Indication: PAIN
     Dates: start: 20090728
  31. NEURONTIN [Concomitant]
     Indication: PAIN
     Dates: start: 20111205
  32. AGGRENOX [Concomitant]
     Dates: start: 20090721
  33. CELEXA/CITALOPRAM [Concomitant]
     Dates: start: 20080505
  34. CELEXA/CITALOPRAM [Concomitant]
     Route: 048
     Dates: start: 20090728
  35. ZESTORETIC [Concomitant]
     Dates: start: 20090721
  36. AMARYL [Concomitant]
     Dates: start: 20020830
  37. AMARYL [Concomitant]
     Dates: start: 20020418
  38. ACTOS [Concomitant]
     Dates: start: 20020830
  39. MELOXICAM [Concomitant]
     Dates: start: 20080505
  40. RANITIDINE [Concomitant]
     Dates: start: 20080505
  41. CYCLOBENZAPRINE HYDROCHLORIDE [Concomitant]
     Indication: PAIN
  42. CYCLOBENZAPRINE HYDROCHLORIDE [Concomitant]
     Indication: PAIN
     Dates: start: 20111205
  43. ANTIVERT [Concomitant]
  44. ANTIVERT [Concomitant]
     Dates: start: 20111205
  45. LORATADINE [Concomitant]
     Dates: start: 20080505
  46. ENDOCET [Concomitant]
     Dates: start: 20080505
  47. ULTRAM [Concomitant]
     Dates: start: 20080505
  48. IBUPROFEN [Concomitant]
     Dates: start: 20080505
  49. ACETAMINOPHEN [Concomitant]
     Dates: start: 20080505
  50. DIPHENHYDRAMINE [Concomitant]
     Dates: start: 20080505
  51. CARISOPRODOL [Concomitant]
     Route: 048
     Dates: start: 20090712
  52. HYDROCODONE ACETAMINOPHEN [Concomitant]
     Indication: PAIN
     Dosage: 10-660 SIX HOURS PRN
     Route: 048
     Dates: start: 20080811
  53. DIOVAN [Concomitant]
     Dates: start: 20050524
  54. TRICOR [Concomitant]
     Dates: start: 20050524
  55. KEFLEX [Concomitant]
     Dates: start: 20050524
  56. ZANAFLEX [Concomitant]
     Dosage: 4 MG 3 PO QHS
     Route: 048
     Dates: start: 20020418
  57. GABAPENTIN [Concomitant]
     Indication: PAIN

REACTIONS (15)
  - Osteoarthritis [Unknown]
  - Localised infection [Unknown]
  - Cerebrovascular accident [Unknown]
  - Arthropathy [Unknown]
  - Nervous system disorder [Unknown]
  - Osteoporosis [Unknown]
  - Foot fracture [Unknown]
  - Upper limb fracture [Unknown]
  - Androgen deficiency [Unknown]
  - Calcium deficiency [Unknown]
  - Vitamin D deficiency [Unknown]
  - Emotional distress [Unknown]
  - Neuropathic arthropathy [Unknown]
  - Ulna fracture [Unknown]
  - Arthritis [Unknown]
